FAERS Safety Report 6386072-6 (Version None)
Quarter: 2009Q4

REPORT INFORMATION
  Report Type: 
  Country: None (occurrence: None)
  Receive Date: 20091002
  Receipt Date: 20081113
  Transmission Date: 20100525
  Serious: No
  Sender: FDA-Public Use
  Company Number: US-ASTRAZENECA-2008UW25407

PATIENT
  Age: 83 Year
  Sex: Female
  Weight: 51.3 kg

DRUGS (4)
  1. ARIMIDEX [Suspect]
     Route: 048
  2. BLOOD PRESSURE PILL [Concomitant]
  3. SINGULAIR [Concomitant]
  4. FOSAMAX [Concomitant]

REACTIONS (1)
  - INJURY [None]
